FAERS Safety Report 10330964 (Version 1)
Quarter: 2014Q3

REPORT INFORMATION
  Report Type: Spontaneous
  Country: US (occurrence: US)
  Receive Date: 20140722
  Receipt Date: 20140722
  Transmission Date: 20150326
  Serious: No
  Sender: FDA-Public Use
  Company Number: US-009507513-1407USA007655

PATIENT
  Age: 55 Year
  Sex: Male

DRUGS (8)
  1. CITALOPRAM [Concomitant]
     Active Substance: CITALOPRAM HYDROBROMIDE
  2. PEGINTRON [Suspect]
     Active Substance: PEGINTERFERON ALFA-2B
     Indication: HEPATITIS C
     Dosage: 150 MICROGRAM, ONCE WEEKLY
     Route: 058
     Dates: start: 20140625
  3. DICLOXACILLIN [Concomitant]
     Active Substance: DICLOXACILLIN
  4. XIFAXAN [Concomitant]
     Active Substance: RIFAXIMIN
  5. NEURONTIN [Concomitant]
     Active Substance: GABAPENTIN
  6. REMERON [Suspect]
     Active Substance: MIRTAZAPINE
     Route: 048
  7. LACTULOSE. [Concomitant]
     Active Substance: LACTULOSE
  8. IBUPROFEN. [Concomitant]
     Active Substance: IBUPROFEN

REACTIONS (2)
  - Mobility decreased [Not Recovered/Not Resolved]
  - Pain [Not Recovered/Not Resolved]

NARRATIVE: CASE EVENT DATE: 201407
